FAERS Safety Report 10058867 (Version 3)
Quarter: 2014Q2

REPORT INFORMATION
  Report Type: Spontaneous
  Country: US (occurrence: US)
  Receive Date: 20140404
  Receipt Date: 20140429
  Transmission Date: 20141212
  Serious: Yes (Death, Hospitalization, Other)
  Sender: FDA-Public Use
  Company Number: US-BAXTER-2014BAX016536

PATIENT
  Age: 80 Year
  Sex: Female

DRUGS (2)
  1. DIANEAL LOW CALCIUM [Suspect]
     Indication: PERITONEAL DIALYSIS
     Route: 033
     Dates: start: 20131224
  2. DIANEAL LOW CALCIUM [Suspect]
     Route: 033
     Dates: start: 20131224

REACTIONS (6)
  - Sepsis [Fatal]
  - Respiratory arrest [Fatal]
  - Viral infection [Recovering/Resolving]
  - Pneumonia [Unknown]
  - Gastroenteritis [Unknown]
  - Dehydration [Recovering/Resolving]
